FAERS Safety Report 13909410 (Version 1)
Quarter: 2017Q3

REPORT INFORMATION
  Report Type: Other
  Country: GB (occurrence: US)
  Receive Date: 20170828
  Receipt Date: 20170828
  Transmission Date: 20171127
  Serious: Yes (Hospitalization, Other)
  Sender: FDA-Public Use
  Company Number: US-CLARIS PHARMASERVICES-2025191

PATIENT
  Age: 63 Year
  Sex: Female

DRUGS (4)
  1. METOPROLOL. [Suspect]
     Active Substance: METOPROLOL
     Indication: ATRIAL FIBRILLATION
     Route: 042
  2. METOPROLOL. [Suspect]
     Active Substance: METOPROLOL
  3. FEXOFENADINE-PSEUDOEPHEDRINE [Suspect]
     Active Substance: FEXOFENADINE\PSEUDOEPHEDRINE
  4. FEXOFENADINE-PSEUDOEPHEDRINE [Concomitant]
     Active Substance: FEXOFENADINE\PSEUDOEPHEDRINE

REACTIONS (3)
  - Myocardial infarction [Recovered/Resolved]
  - Drug interaction [Recovered/Resolved]
  - Arteriospasm coronary [Recovered/Resolved]
